FAERS Safety Report 8267509-4 (Version None)
Quarter: 2012Q2

REPORT INFORMATION
  Report Type: 
  Country: None (occurrence: None)
  Receive Date: 20120409
  Receipt Date: 20120330
  Transmission Date: 20120825
  Serious: Yes (Hospitalization)
  Sender: FDA-Public Use
  Company Number: US-VERTEX PHARMACEUTICALS INC.-AE-2012-004609

PATIENT
  Sex: Male

DRUGS (7)
  1. VITAMIN B COMPLEX CAP [Concomitant]
  2. VITAMIN A [Concomitant]
  3. LACTULOSE [Concomitant]
  4. INCIVEK [Suspect]
     Indication: HEPATITIS C
     Route: 048
     Dates: start: 20120208, end: 20120325
  5. ZOLOFT [Concomitant]
  6. RIBAVIRIN [Concomitant]
     Indication: HEPATITIS C
     Route: 048
     Dates: start: 20120208, end: 20120325
  7. PEGASYS [Concomitant]
     Indication: HEPATITIS C
     Route: 058
     Dates: start: 20120208, end: 20120325

REACTIONS (4)
  - ANAEMIA [None]
  - HEPATIC ENCEPHALOPATHY [None]
  - AGGRESSION [None]
  - FAECES DISCOLOURED [None]
